FAERS Safety Report 16306162 (Version 3)
Quarter: 2021Q1

REPORT INFORMATION
  Report Type: Spontaneous
  Country: US (occurrence: US)
  Receive Date: 20190513
  Receipt Date: 20210323
  Transmission Date: 20210419
  Serious: Yes (Death, Other)
  Sender: FDA-Public Use
  Company Number: US-ASTRAZENECA-2019SE67355

PATIENT
  Age: 27288 Day
  Sex: Male
  Weight: 63.5 kg

DRUGS (50)
  1. PREVACID [Suspect]
     Active Substance: LANSOPRAZOLE
     Indication: GASTROOESOPHAGEAL REFLUX DISEASE
     Route: 065
     Dates: start: 20020315, end: 20120206
  2. TOPROL XL [Concomitant]
     Active Substance: METOPROLOL SUCCINATE
  3. AZITHROMYCIN ANHYDROUS. [Concomitant]
     Active Substance: AZITHROMYCIN ANHYDROUS
  4. AGRYLIN [Concomitant]
     Active Substance: ANAGRELIDE HYDROCHLORIDE
  5. PRILOSEC [Suspect]
     Active Substance: OMEPRAZOLE MAGNESIUM
     Indication: GASTROOESOPHAGEAL REFLUX DISEASE
     Route: 048
     Dates: start: 200807, end: 201201
  6. PROTONIX [Suspect]
     Active Substance: PANTOPRAZOLE SODIUM
     Indication: GASTROOESOPHAGEAL REFLUX DISEASE
     Route: 065
     Dates: start: 200807, end: 201201
  7. METOPROLOL. [Concomitant]
     Active Substance: METOPROLOL
     Indication: HYPERTENSION
     Dates: start: 200807, end: 201201
  8. HYDRALAZINE [Concomitant]
     Active Substance: HYDRALAZINE HYDROCHLORIDE
  9. PROTONIX [Suspect]
     Active Substance: PANTOPRAZOLE SODIUM
     Indication: GASTROOESOPHAGEAL REFLUX DISEASE
     Route: 065
     Dates: start: 200807, end: 201201
  10. PROTONIX [Suspect]
     Active Substance: PANTOPRAZOLE SODIUM
     Indication: GASTROOESOPHAGEAL REFLUX DISEASE
     Route: 065
     Dates: start: 20120127
  11. ARANESP [Concomitant]
     Active Substance: DARBEPOETIN ALFA
     Indication: ANAEMIA
     Dates: start: 200804, end: 201202
  12. FUROSEMIDE. [Concomitant]
     Active Substance: FUROSEMIDE
     Indication: DIURETIC THERAPY
     Dates: start: 201011, end: 201105
  13. ALPHAGAN P [Concomitant]
     Active Substance: BRIMONIDINE TARTRATE
  14. RENVELA [Concomitant]
     Active Substance: SEVELAMER CARBONATE
  15. AMOXICILLIN. [Concomitant]
     Active Substance: AMOXICILLIN
  16. MIRALAX [Concomitant]
     Active Substance: POLYETHYLENE GLYCOL 3350
  17. TIMOLOL. [Concomitant]
     Active Substance: TIMOLOL
  18. CLINDAMYCIN. [Concomitant]
     Active Substance: CLINDAMYCIN
  19. LEVOPHED [Concomitant]
     Active Substance: NOREPINEPHRINE BITARTRATE
     Indication: HYPERTENSION
     Dates: start: 201201, end: 201202
  20. OSCAL [Concomitant]
     Active Substance: CALCIUM CARBONATE
  21. XALATAN [Concomitant]
     Active Substance: LATANOPROST
  22. ASPIRIN. [Concomitant]
     Active Substance: ASPIRIN
  23. VIAGRA [Concomitant]
     Active Substance: SILDENAFIL CITRATE
  24. DIOVAN [Concomitant]
     Active Substance: VALSARTAN
  25. ADALAT [Concomitant]
     Active Substance: NIFEDIPINE
  26. COLYTE [Concomitant]
     Active Substance: POLYETHYLENE GLYCOL 3350\POTASSIUM CHLORIDE\SODIUM BICARBONATE\SODIUM CHLORIDE\SODIUM SULFATE
  27. PRILOSEC [Suspect]
     Active Substance: OMEPRAZOLE MAGNESIUM
     Indication: GASTROOESOPHAGEAL REFLUX DISEASE
     Dosage: GENERIC
     Route: 065
     Dates: start: 20101208
  28. PREVACID [Suspect]
     Active Substance: LANSOPRAZOLE
     Indication: GASTROOESOPHAGEAL REFLUX DISEASE
     Route: 065
     Dates: start: 200807, end: 201201
  29. PREVACID [Suspect]
     Active Substance: LANSOPRAZOLE
     Indication: GASTROOESOPHAGEAL REFLUX DISEASE
     Route: 065
     Dates: start: 20020429
  30. PYRIDOXINE [Concomitant]
     Active Substance: PYRIDOXINE
  31. TEKTURNA [Concomitant]
     Active Substance: ALISKIREN HEMIFUMARATE
  32. VITAMIN D [Concomitant]
     Active Substance: VITAMIN D NOS
  33. LUMIGAN [Concomitant]
     Active Substance: BIMATOPROST
  34. FERROUS SULFATE. [Concomitant]
     Active Substance: FERROUS SULFATE
  35. NORVASC [Concomitant]
     Active Substance: AMLODIPINE BESYLATE
  36. FLUNISOLIDE. [Concomitant]
     Active Substance: FLUNISOLIDE
  37. NEXIUM [Suspect]
     Active Substance: ESOMEPRAZOLE MAGNESIUM
     Indication: GASTROOESOPHAGEAL REFLUX DISEASE
     Route: 048
     Dates: start: 200807, end: 201201
  38. PRILOSEC [Suspect]
     Active Substance: OMEPRAZOLE MAGNESIUM
     Indication: GASTROOESOPHAGEAL REFLUX DISEASE
     Route: 048
     Dates: start: 20080701, end: 20120128
  39. PROTONIX [Suspect]
     Active Substance: PANTOPRAZOLE SODIUM
     Indication: GASTROOESOPHAGEAL REFLUX DISEASE
     Route: 065
     Dates: start: 20080430, end: 20120127
  40. ACETAMINOPHEN. [Concomitant]
     Active Substance: ACETAMINOPHEN
     Indication: PAIN
     Dates: start: 2011
  41. IPRATROPIUM [Concomitant]
     Active Substance: IPRATROPIUM
  42. AVELOX [Concomitant]
     Active Substance: MOXIFLOXACIN HYDROCHLORIDE
     Indication: ANTIBIOTIC LEVEL
     Dates: start: 201201, end: 201202
  43. HYDROXYUREA. [Concomitant]
     Active Substance: HYDROXYUREA
     Indication: SKIN CANCER
     Dates: start: 200812, end: 201107
  44. EXFORGE [Concomitant]
     Active Substance: AMLODIPINE BESYLATE\VALSARTAN
     Indication: CARDIAC DISORDER
     Dates: start: 200804, end: 201111
  45. ALLOPURINOL. [Concomitant]
     Active Substance: ALLOPURINOL
     Indication: GOUT
     Dates: start: 201105, end: 201111
  46. LORAZEPAM. [Concomitant]
     Active Substance: LORAZEPAM
  47. NEXIUM [Suspect]
     Active Substance: ESOMEPRAZOLE MAGNESIUM
     Indication: GASTROOESOPHAGEAL REFLUX DISEASE
     Route: 048
     Dates: start: 2002, end: 2012
  48. PRILOSEC [Suspect]
     Active Substance: OMEPRAZOLE MAGNESIUM
     Indication: GASTROOESOPHAGEAL REFLUX DISEASE
     Dosage: GENERIC
     Route: 065
     Dates: start: 20100222, end: 20111007
  49. PROTONIX [Suspect]
     Active Substance: PANTOPRAZOLE SODIUM
     Indication: GASTROOESOPHAGEAL REFLUX DISEASE
     Route: 048
     Dates: start: 20080415
  50. COLCRYS [Concomitant]
     Active Substance: COLCHICINE

REACTIONS (5)
  - Chronic kidney disease [Unknown]
  - Renal failure [Unknown]
  - Nephrogenic anaemia [Unknown]
  - Cardiac failure congestive [Fatal]
  - End stage renal disease [Fatal]

NARRATIVE: CASE EVENT DATE: 20080701
